FAERS Safety Report 20685289 (Version 1)
Quarter: 2022Q2

REPORT INFORMATION
  Report Type: Report from Study
  Country: IN (occurrence: IN)
  Receive Date: 20220407
  Receipt Date: 20220407
  Transmission Date: 20220721
  Serious: Yes (Hospitalization, Other)
  Sender: FDA-Public Use
  Company Number: IN-NOVARTISPH-PHHY2018IN089647

PATIENT
  Age: 50 Year
  Sex: Female

DRUGS (16)
  1. SIMULECT [Suspect]
     Active Substance: BASILIXIMAB
     Indication: Renal transplant
     Dosage: 20 MG, UNK (ONE SINGLE DOSE)
     Route: 042
     Dates: start: 20180712, end: 20180712
  2. SIMULECT [Suspect]
     Active Substance: BASILIXIMAB
     Dosage: 20 MG, UNK (ONE SINGLE DOSE)
     Route: 042
     Dates: start: 20180715, end: 20180715
  3. SIMULECT [Suspect]
     Active Substance: BASILIXIMAB
     Dosage: 20 UNK (2)
     Route: 065
  4. TACROREN [Concomitant]
     Indication: Product used for unknown indication
     Dosage: 3 MG (0-3MG 7 AM-7PM) (B/F)
     Route: 065
  5. IMMUTIL [Concomitant]
     Indication: Product used for unknown indication
     Dosage: TID (1-1-1) (7 AM-1PM-7PM-B/F)
     Route: 065
  6. PREDNISOLONE [Concomitant]
     Active Substance: PREDNISOLONE
     Indication: Product used for unknown indication
     Dosage: 30 MG, QD (1-0-0 A/F)
     Route: 065
  7. CALCIUM CARBONATE\CHOLECALCIFEROL [Concomitant]
     Active Substance: CALCIUM CARBONATE\CHOLECALCIFEROL
     Indication: Product used for unknown indication
     Dosage: 500 MG, QD (0-1-0)
     Route: 065
  8. MOXILONG [Concomitant]
     Indication: Product used for unknown indication
     Dosage: BID (1-0-1 7AM-7PM)
     Route: 065
  9. NULONG [Concomitant]
     Indication: Product used for unknown indication
     Dosage: 1 DOSAGE FORM, BID (1-0-1 8AM-8PM)
     Route: 065
  10. PROLOMET [Concomitant]
     Indication: Product used for unknown indication
     Dosage: 1 DOSAGE FORM, BID (1-0-1) (9AM-9 PM)
     Route: 065
  11. LASIX [Concomitant]
     Active Substance: FUROSEMIDE
     Indication: Product used for unknown indication
     Dosage: 1 DOSAGE FORM, QD (1-0-0)
     Route: 065
  12. HEXIDINE MOUTHWASH [Concomitant]
     Indication: Product used for unknown indication
     Route: 065
  13. SEPMAX [Concomitant]
     Indication: Product used for unknown indication
     Dosage: (0-0-1 X ON ALTERNATIVE DAYS)
     Route: 065
  14. ACTRAPID [Concomitant]
     Active Substance: INSULIN HUMAN
     Indication: Product used for unknown indication
     Dosage: (6-6-10 UNITS)
     Route: 065
  15. ISOPHANE INSULIN [Concomitant]
     Active Substance: INSULIN NOS
     Indication: Product used for unknown indication
     Dosage: (4-0-10 UNITS)
     Route: 058
  16. HYPO [Concomitant]
     Indication: Product used for unknown indication
     Dosage: (2 SOS)
     Route: 065

REACTIONS (4)
  - Kidney transplant rejection [Unknown]
  - Renal tubular injury [Unknown]
  - Urine output decreased [Unknown]
  - Blood creatinine increased [Unknown]

NARRATIVE: CASE EVENT DATE: 20180724
